FAERS Safety Report 7304223-3 (Version None)
Quarter: 2011Q1

REPORT INFORMATION
  Report Type: 
  Country: None (occurrence: None)
  Receive Date: 20110221
  Receipt Date: 20110208
  Transmission Date: 20110831
  Serious: Yes (Other)
  Sender: FDA-Public Use
  Company Number: US-BAYER-2011-013694

PATIENT
  Sex: Female

DRUGS (2)
  1. MIRENA [Suspect]
     Indication: CONTRACEPTION
     Dosage: 20 MCG/24HR, UNK
     Route: 015
     Dates: start: 20101121
  2. MIRENA [Suspect]
     Dosage: UNK
     Dates: start: 20051127, end: 20101121

REACTIONS (3)
  - PYREXIA [None]
  - ABDOMINAL PAIN [None]
  - OVARIAN CYST [None]
